FAERS Safety Report 7457042-1 (Version None)
Quarter: 2011Q2

REPORT INFORMATION
  Report Type: 
  Country: None (occurrence: None)
  Receive Date: 20110504
  Receipt Date: 20110418
  Transmission Date: 20111010
  Serious: Yes (Hospitalization)
  Sender: FDA-Public Use
  Company Number: US-BAYER-2010-006203

PATIENT
  Age: 20 Year
  Sex: Female
  Weight: 104.31 kg

DRUGS (4)
  1. YASMIN [Suspect]
     Indication: PRODUCT USED FOR UNKNOWN INDICATION
     Dosage: UNK
     Dates: start: 20071201, end: 20090601
  2. YAZ [Suspect]
     Indication: PRODUCT USED FOR UNKNOWN INDICATION
     Dosage: UNK
     Dates: start: 20071201, end: 20090601
  3. AMOXICILLIN [Concomitant]
     Dosage: 1 UNK, UNK
     Route: 048
     Dates: start: 20090128
  4. AZITHROMYCIN [Concomitant]
     Dosage: UNK
     Route: 048
     Dates: start: 20090204

REACTIONS (1)
  - CHOLELITHIASIS [None]
